FAERS Safety Report 7342099-9 (Version None)
Quarter: 2011Q1

REPORT INFORMATION
  Report Type: 
  Country: None (occurrence: None)
  Receive Date: 20110309
  Receipt Date: 20110302
  Transmission Date: 20110831
  Serious: Yes (Other)
  Sender: FDA-Public Use
  Company Number: US-RB-012706-10

PATIENT
  Age: 53 Year
  Sex: Male

DRUGS (6)
  1. SUBOXONE [Suspect]
     Indication: DRUG DEPENDENCE
     Dosage: UNKNOWN DOSING DETAILS, STATES HE TAKES 4 PILLS PER DAY
     Route: 060
     Dates: start: 20100601
  2. BENZOS [Suspect]
     Indication: PRODUCT USED FOR UNKNOWN INDICATION
     Dosage: UNKNOWN DOSING DETAILS
     Route: 065
  3. SUBOXONE [Suspect]
     Indication: PRODUCT USED FOR UNKNOWN INDICATION
     Dosage: SUBLINGUAL FILM - DOSAGE UNKNOWN AT THIS TIME
     Route: 065
  4. XANAX [Concomitant]
     Indication: ANXIETY
     Route: 065
     Dates: start: 20090101
  5. ATIVAN [Suspect]
     Indication: PRODUCT USED FOR UNKNOWN INDICATION
     Dosage: UNKNOWN DOSING DETAILS
     Route: 065
  6. HALCION [Concomitant]
     Indication: INSOMNIA
     Dosage: .25 MG AT NIGHT
     Route: 065
     Dates: start: 20100701

REACTIONS (17)
  - LETHARGY [None]
  - RESTLESSNESS [None]
  - OVERDOSE [None]
  - HEADACHE [None]
  - VOMITING [None]
  - LUNG NEOPLASM [None]
  - DYSPNOEA [None]
  - PAIN IN EXTREMITY [None]
  - BURNOUT SYNDROME [None]
  - ANXIETY [None]
  - BRONCHIAL DISORDER [None]
  - INSOMNIA [None]
  - AMNESIA [None]
  - ABDOMINAL PAIN UPPER [None]
  - WHEEZING [None]
  - DRUG WITHDRAWAL SYNDROME [None]
  - DECREASED APPETITE [None]
